FAERS Safety Report 6810062-X (Version None)
Quarter: 2010Q2

REPORT INFORMATION
  Report Type: 
  Country: None (occurrence: None)
  Receive Date: 20100630
  Receipt Date: 20100624
  Transmission Date: 20101027
  Serious: Yes (Other)
  Sender: FDA-Public Use
  Company Number: BE-B.I. PHARMACEUTICALS,INC./RIDGEFIELD-2010-DE-03446GD

PATIENT
  Sex: Female

DRUGS (3)
  1. CLONIDINE [Suspect]
     Indication: EPIDURAL ANAESTHESIA
     Dosage: 75 MCG
     Route: 008
  2. ROPIVACAINE [Suspect]
     Indication: EPIDURAL ANAESTHESIA
     Dosage: 9 ML OF 0.2% BOLUS
     Route: 008
  3. RINGER'S LACTATE SOLUTION [Concomitant]
     Dosage: 500 ML
     Route: 042

REACTIONS (1)
  - HYPOTENSION [None]
